FAERS Safety Report 5507639-0 (Version None)
Quarter: 2007Q4

REPORT INFORMATION
  Report Type: 
  Country: None (occurrence: None)
  Receive Date: 20071106
  Receipt Date: 20071026
  Transmission Date: 20080405
  Serious: Yes (Death, Hospitalization)
  Sender: FDA-Public Use
  Company Number: HQWYE002719MAY04

PATIENT
  Sex: Female

DRUGS (1)
  1. PREMARIN [Suspect]
     Dosage: UNSPECIFIED
     Dates: start: 19930101, end: 20010701

REACTIONS (4)
  - ENTEROCUTANEOUS FISTULA [None]
  - FEMALE GENITAL TRACT FISTULA [None]
  - METASTASES TO LIVER [None]
  - OVARIAN CANCER METASTATIC [None]
